FAERS Safety Report 9602109 (Version 1)
Quarter: 2013Q4

REPORT INFORMATION
  Report Type: Spontaneous
  Country: TR (occurrence: None)
  Receive Date: 20131002
  Receipt Date: 20131002
  Transmission Date: 20140711
  Serious: Yes (Other)
  Sender: FDA-Public Use
  Company Number: FK201304307

PATIENT
  Age: 74 Year
  Sex: Male

DRUGS (1)
  1. METHOTREXATE (MANUFACTURER UNKNOWN) (METHOTREXATE) (METHOTREXATE) [Suspect]
     Indication: PSORIASIS
     Dosage: 20 MG, TOTAL 5 DAYS

REACTIONS (7)
  - Oral mucosa erosion [None]
  - Alopecia [None]
  - Skin ulcer [None]
  - Parakeratosis [None]
  - Oedema [None]
  - Toxicity to various agents [None]
  - Skin hyperpigmentation [None]
